FAERS Safety Report 10175128 (Version 2)
Quarter: 2014Q2

REPORT INFORMATION
  Report Type: Report from Study
  Country: US (occurrence: US)
  Receive Date: 20140515
  Receipt Date: 20140515
  Transmission Date: 20141212
  Serious: Yes (Other)
  Sender: FDA-Public Use
  Company Number: PHEH2014US008375

PATIENT
  Age: 6 Year
  Sex: Female
  Weight: 23.4 kg

DRUGS (4)
  1. TOBI [Suspect]
     Indication: CYSTIC FIBROSIS
     Dosage: 300 MG/5 ML, BID
     Route: 055
  2. TOBI [Suspect]
     Dosage: UNK
     Route: 055
  3. TOBI PODHALER [Suspect]
     Indication: PSEUDOMONAS INFECTION
     Dosage: 112 MG, BID
     Route: 055
     Dates: start: 20140421, end: 20140424
  4. TOBI PODHALER [Suspect]
     Indication: CYSTIC FIBROSIS

REACTIONS (3)
  - Beta haemolytic streptococcal infection [Unknown]
  - Dysphonia [Recovered/Resolved]
  - Aphonia [Unknown]
